FAERS Safety Report 21527157 (Version 1)
Quarter: 2022Q4

REPORT INFORMATION
  Report Type: Other
  Country: PT (occurrence: PT)
  Receive Date: 20221031
  Receipt Date: 20221031
  Transmission Date: 20230113
  Serious: Yes (Other)
  Sender: FDA-Public Use
  Company Number: PT-CELLTRION INC.-2022PT018087

PATIENT

DRUGS (7)
  1. HERZUMA [Suspect]
     Active Substance: TRASTUZUMAB-PKRB
     Indication: HER2 positive breast cancer
     Dosage: 450 MILLIGRAM, CYCLIC (ROA-20045000)
     Route: 065
     Dates: start: 20210720
  2. DAFLON 1000 [Concomitant]
     Dosage: 1000 MILLIGRAM, EVERY 1 DAY (ROA-20053000)
     Route: 065
  3. GLUCOSAMINA [GLUCOSAMINE] [Concomitant]
     Dosage: EVERY 1 DAY (ROA-20053000)
     Route: 065
  4. PACLITAXEL [Concomitant]
     Active Substance: PACLITAXEL
     Dosage: (ROA-20045000)
     Route: 065
  5. PANTOPRAZOLE [Concomitant]
     Active Substance: PANTOPRAZOLE
     Dosage: 40 MILLIGRAM, EVERY 1 DAY (ROA-20053000)
     Route: 065
  6. BILOBAN [Concomitant]
     Dosage: 1 DF, EVERY 1 DAY (ROA-20053000)
     Route: 065
  7. ESCITALOPRAM [Concomitant]
     Active Substance: ESCITALOPRAM OXALATE
     Dosage: 10 MILLIGRAM, EVERY 1 DAY (ROA-20053000)
     Route: 065

REACTIONS (1)
  - Neuropathy peripheral [Unknown]

NARRATIVE: CASE EVENT DATE: 20220307
